FAERS Safety Report 5939675-4 (Version None)
Quarter: 2008Q4

REPORT INFORMATION
  Report Type: 
  Country: None (occurrence: None)
  Receive Date: 20081030
  Receipt Date: 20081030
  Transmission Date: 20090506
  Serious: Yes (Other)
  Sender: FDA-Public Use
  Company Number: None

PATIENT
  Age: 53 Year
  Sex: Female
  Weight: 72.5755 kg

DRUGS (1)
  1. PREDNISONE TAB [Suspect]
     Indication: COLITIS ULCERATIVE
     Dosage: 40 MG PER DAY PO
     Route: 048
     Dates: start: 20080715, end: 20081008

REACTIONS (4)
  - CUSHINGOID [None]
  - LIPOHYPERTROPHY [None]
  - LOCAL SWELLING [None]
  - SWELLING FACE [None]
